FAERS Safety Report 18484323 (Version 3)
Quarter: 2020Q4

REPORT INFORMATION
  Report Type: Spontaneous
  Country: US (occurrence: US)
  Receive Date: 20201110
  Receipt Date: 20201222
  Transmission Date: 20210114
  Serious: Yes (Hospitalization)
  Sender: FDA-Public Use
  Company Number: US-GLOBAL BLOOD THERAPEUTICS INC-US-GBT-20-03528

PATIENT
  Sex: Female

DRUGS (1)
  1. OXBRYTA [Suspect]
     Active Substance: VOXELOTOR
     Indication: SICKLE CELL ANAEMIA WITH CRISIS
     Route: 048
     Dates: start: 20200603, end: 2020

REACTIONS (6)
  - Foot fracture [Unknown]
  - Product use complaint [Unknown]
  - Oxygen saturation abnormal [Unknown]
  - Off label use [Unknown]
  - Fall [Unknown]
  - Swelling face [Unknown]

NARRATIVE: CASE EVENT DATE: 2020
